FAERS Safety Report 20837667 (Version 1)
Quarter: 2022Q2

REPORT INFORMATION
  Report Type: Report from Study
  Country: US (occurrence: None)
  Receive Date: 20220517
  Receipt Date: 20220517
  Transmission Date: 20220721
  Serious: Yes (Other)
  Sender: FDA-Public Use
  Company Number: US-ROCHE-3093316

PATIENT
  Age: 55 Year
  Sex: Female
  Weight: 61 kg

DRUGS (3)
  1. ATEZOLIZUMAB [Suspect]
     Active Substance: ATEZOLIZUMAB
     Indication: Ovarian cancer
     Dosage: TOTAL DOSE ADMINISTERED THIS COURSE: 800 MG?LAST ADMINISTERED DATE: 05/JAN/2022
     Route: 041
     Dates: start: 20210929, end: 20220105
  2. BEVACIZUMAB [Suspect]
     Active Substance: BEVACIZUMAB
     Indication: Ovarian cancer
     Dosage: TOTAL DOSE ADMINISTERED THIS COURSE: 500 MG?LAST ADMINISTERED DATE: 05/JAN/2022
     Route: 042
     Dates: start: 20210929, end: 20220105
  3. DOXORUBICIN HYDROCHLORIDE [Suspect]
     Active Substance: DOXORUBICIN HYDROCHLORIDE
     Indication: Ovarian cancer
     Dosage: TOTAL DOSE ADMINISTERED IN THE COURSE: 62 MG?LAST ADMINISTERED DATE: 05/JAN/2022
     Route: 042
     Dates: start: 20210929, end: 20220105

REACTIONS (1)
  - Neutropenia [Recovering/Resolving]

NARRATIVE: CASE EVENT DATE: 20220119
